FAERS Safety Report 10074184 (Version 1)
Quarter: 2014Q2

REPORT INFORMATION
  Report Type: Spontaneous
  Country: US (occurrence: US)
  Receive Date: 20140413
  Receipt Date: 20140413
  Transmission Date: 20141212
  Serious: No
  Sender: FDA-Public Use
  Company Number: US-TEVA-474071USA

PATIENT
  Age: 46 Year
  Sex: Female
  Weight: 54.48 kg

DRUGS (3)
  1. NUVIGIL [Suspect]
     Indication: SOMNOLENCE
     Dates: start: 20140404
  2. ARMOUR THYROID [Concomitant]
     Indication: THYROID DISORDER
  3. ZOLOFT [Concomitant]
     Indication: DEPRESSION

REACTIONS (4)
  - Headache [Not Recovered/Not Resolved]
  - Fatigue [Not Recovered/Not Resolved]
  - Insomnia [Not Recovered/Not Resolved]
  - Intentional product misuse [Unknown]
